FAERS Safety Report 22365337 (Version 1)
Quarter: 2023Q2

REPORT INFORMATION
  Report Type: Spontaneous
  Country: US (occurrence: US)
  Receive Date: 20230525
  Receipt Date: 20230525
  Transmission Date: 20230722
  Serious: No
  Sender: FDA-Public Use
  Company Number: US-UCBSA-2023007908

PATIENT
  Sex: Female

DRUGS (3)
  1. CIMZIA [Suspect]
     Active Substance: CERTOLIZUMAB PEGOL
     Indication: Rheumatoid arthritis
     Dosage: 200 MILLIGRAM, EV 2 WEEKS EVERY 14 DAYS (QOW)
     Route: 058
     Dates: start: 2009
  2. ALEVE [Concomitant]
     Active Substance: NAPROXEN SODIUM
     Indication: Product used for unknown indication
     Dosage: 220 MILLIGRAM
  3. DAILY-VITE [Concomitant]
     Indication: Product used for unknown indication
     Dosage: 400 MICROGRAM (MCG)

REACTIONS (2)
  - COVID-19 [Unknown]
  - Therapy cessation [Unknown]
